FAERS Safety Report 22264446 (Version 1)
Quarter: 2023Q2

REPORT INFORMATION
  Report Type: Spontaneous
  Country: CA (occurrence: CA)
  Receive Date: 20230428
  Receipt Date: 20230428
  Transmission Date: 20230722
  Serious: Yes (Death)
  Sender: FDA-Public Use
  Company Number: CA-009507513-2304CAN008006

PATIENT
  Age: 76 Year
  Sex: Male

DRUGS (14)
  1. INVANZ [Suspect]
     Active Substance: ERTAPENEM SODIUM
     Dosage: UNK
  2. ASPIRIN [Concomitant]
     Active Substance: ASPIRIN
     Route: 065
  3. CALCIUM CARBONATE [Concomitant]
     Active Substance: CALCIUM CARBONATE
  4. FRAGMIN [Concomitant]
     Active Substance: DALTEPARIN SODIUM
  5. GABAPENTIN [Concomitant]
     Active Substance: GABAPENTIN
  6. HYDROCORTISONE [Concomitant]
     Active Substance: HYDROCORTISONE
  7. HYDROMORPHONE [Concomitant]
     Active Substance: HYDROMORPHONE
  8. INSULIN NOS [Concomitant]
     Active Substance: INSULIN NOS
  9. LACTULOSE [Concomitant]
     Active Substance: LACTULOSE
  10. LATANOPROST [Concomitant]
     Active Substance: LATANOPROST
  11. MIDODRINE [Concomitant]
     Active Substance: MIDODRINE
  12. MINERALS\VITAMINS [Concomitant]
     Active Substance: MINERALS\VITAMINS
  13. ROSUVASTATIN [Concomitant]
     Active Substance: ROSUVASTATIN
     Route: 065
  14. VITAMIN B COMPLEX [Concomitant]
     Active Substance: CYANOCOBALAMIN\DEXPANTHENOL\NIACINAMIDE\PYRIDOXINE HYDROCHLORIDE\RIBOFLAVIN 5^-PHOSPHATE SODIUM\THIA

REACTIONS (1)
  - Clostridium test positive [Fatal]
